FAERS Safety Report 15247775 (Version 2)
Quarter: 2018Q3

REPORT INFORMATION
  Report Type: Spontaneous
  Country: MT (occurrence: MT)
  Receive Date: 20180807
  Receipt Date: 20180817
  Transmission Date: 20181010
  Serious: Yes (Life-Threatening, Hospitalization, Other)
  Sender: FDA-Public Use
  Company Number: MT-AUROBINDO-AUR-APL-2018-040509

PATIENT
  Age: 31 Year
  Sex: Female

DRUGS (4)
  1. PARACETAMOL + CAFFEINE [Suspect]
     Active Substance: ACETAMINOPHEN\CAFFEINE
     Indication: PRODUCT USED FOR UNKNOWN INDICATION
     Dosage: 12 / 480 MILLIGRAM
     Route: 065
  2. IBUPROFEN. [Suspect]
     Active Substance: IBUPROFEN
     Indication: PRODUCT USED FOR UNKNOWN INDICATION
     Dosage: 2.74 GRAM IN TOTAL
     Route: 065
  3. PERINDOPRIL [Suspect]
     Active Substance: PERINDOPRIL
     Indication: PRODUCT USED FOR UNKNOWN INDICATION
     Dosage: 104 MILLIGRAM IN TOTAL
     Route: 065
  4. AMLODIPINE [Suspect]
     Active Substance: AMLODIPINE BESYLATE
     Indication: PRODUCT USED FOR UNKNOWN INDICATION
     Dosage: 260 MILLIGRAM IN TOTAL
     Route: 065

REACTIONS (8)
  - Tachypnoea [Recovering/Resolving]
  - Confusional state [Recovering/Resolving]
  - Intentional product use issue [Recovering/Resolving]
  - Hypotension [Recovering/Resolving]
  - Vomiting [Recovering/Resolving]
  - Tachycardia [Recovering/Resolving]
  - Metabolic acidosis [Recovering/Resolving]
  - Intentional overdose [Recovering/Resolving]
